FAERS Safety Report 17482725 (Version 4)
Quarter: 2020Q4

REPORT INFORMATION
  Report Type: Spontaneous
  Country: US (occurrence: US)
  Receive Date: 20200302
  Receipt Date: 20201028
  Transmission Date: 20210113
  Serious: No
  Sender: FDA-Public Use
  Company Number: NVSC2020US059022

PATIENT
  Sex: Female
  Weight: 50.34 kg

DRUGS (1)
  1. ZOFRAN [Suspect]
     Active Substance: ONDANSETRON HYDROCHLORIDE
     Indication: MORNING SICKNESS
     Dosage: 08 MG, Q8H
     Route: 048
     Dates: start: 20110831, end: 20110930

REACTIONS (9)
  - Vulvovaginal pain [Unknown]
  - Rash [Unknown]
  - Depression [Unknown]
  - Anxiety [Unknown]
  - Pollakiuria [Unknown]
  - Maternal exposure during pregnancy [Unknown]
  - Abdominal pain [Unknown]
  - Product use in unapproved indication [Unknown]
  - Emotional distress [Unknown]
